FAERS Safety Report 15979357 (Version 1)
Quarter: 2019Q1

REPORT INFORMATION
  Report Type: Spontaneous
  Country: FR (occurrence: FR)
  Receive Date: 20190219
  Receipt Date: 20190219
  Transmission Date: 20190418
  Serious: Yes (Hospitalization)
  Sender: FDA-Public Use
  Company Number: FR-TEVA-2019-FR-1012721

PATIENT
  Age: 70 Year
  Sex: Female
  Weight: 95 kg

DRUGS (14)
  1. GALVUS [Concomitant]
     Active Substance: VILDAGLIPTIN
  2. EFFEXOR [Concomitant]
     Active Substance: VENLAFAXINE HYDROCHLORIDE
  3. DICETEL [Concomitant]
     Active Substance: PINAVERIUM BROMIDE
  4. LETROZOLE. [Suspect]
     Active Substance: LETROZOLE
     Indication: BREAST CANCER
     Route: 048
     Dates: start: 20181129, end: 20190107
  5. TRANXENE [Concomitant]
     Active Substance: CLORAZEPATE DIPOTASSIUM
  6. LIBRAX [Concomitant]
     Active Substance: CHLORDIAZEPOXIDE HYDROCHLORIDE\CLIDINIUM BROMIDE
  7. SOTALOL (CHLORHYDRATE DE) [Concomitant]
     Active Substance: SOTALOL
  8. XANAX [Concomitant]
     Active Substance: ALPRAZOLAM
  9. DIAMICRON [Concomitant]
     Active Substance: GLICLAZIDE
  10. ESIDREX [Concomitant]
     Active Substance: HYDROCHLOROTHIAZIDE
  11. DOLIPRANE [Concomitant]
     Active Substance: ACETAMINOPHEN
  12. VERATRAN [Concomitant]
     Active Substance: CLOTIAZEPAM
  13. ATACAND [Concomitant]
     Active Substance: CANDESARTAN CILEXETIL
  14. ESOMEPRAZOLE. [Concomitant]
     Active Substance: ESOMEPRAZOLE MAGNESIUM

REACTIONS (1)
  - Rash generalised [Recovering/Resolving]

NARRATIVE: CASE EVENT DATE: 20190105
